FAERS Safety Report 5582450-3 (Version None)
Quarter: 2007Q4

REPORT INFORMATION
  Report Type: 
  Country: None (occurrence: None)
  Receive Date: 20071130
  Receipt Date: 20070214
  Transmission Date: 20080405
  Serious: Yes (Hospitalization)
  Sender: FDA-Public Use
  Company Number: WAES 0702USA02805

PATIENT
  Age: 58 Year
  Sex: Female

DRUGS (1)
  1. FOSAMAX [Suspect]
     Indication: OSTEOPOROSIS
     Dosage: 70 MG, PO
     Route: 048
     Dates: start: 20040101, end: 20051101

REACTIONS (2)
  - GASTROOESOPHAGEAL REFLUX DISEASE [None]
  - OESOPHAGEAL DISORDER [None]
